FAERS Safety Report 12650032 (Version 2)
Quarter: 2016Q3

REPORT INFORMATION
  Report Type: Spontaneous
  Country: GB (occurrence: GB)
  Receive Date: 20160813
  Receipt Date: 20160824
  Transmission Date: 20161109
  Serious: Yes (Other)
  Sender: FDA-Public Use
  Company Number: GB-ACCORD-043024

PATIENT
  Age: 63 Year
  Sex: Female
  Weight: 73.47 kg

DRUGS (5)
  1. OMEPRAZOLE. [Concomitant]
     Active Substance: OMEPRAZOLE
     Indication: REFLUX LARYNGITIS
  2. CALCIUM LACTATE/CALCIUM PHOSPHATE/ERGOCALCIFEROL [Concomitant]
  3. ANASTROZOLE. [Suspect]
     Active Substance: ANASTROZOLE
     Indication: BREAST CANCER FEMALE
     Route: 048
     Dates: start: 20160406
  4. AMITRIPTYLINE [Concomitant]
     Active Substance: AMITRIPTYLINE
  5. OENOTHERA BIENNIS [Concomitant]
     Active Substance: OENOTHERA BIENNIS

REACTIONS (8)
  - Bone pain [Not Recovered/Not Resolved]
  - Tension headache [Recovering/Resolving]
  - Abdominal pain upper [Not Recovered/Not Resolved]
  - Hot flush [Not Recovered/Not Resolved]
  - Paraesthesia [Not Recovered/Not Resolved]
  - Abdominal distension [Not Recovered/Not Resolved]
  - Insomnia [Recovering/Resolving]
  - Throat tightness [Not Recovered/Not Resolved]

NARRATIVE: CASE EVENT DATE: 20160410
